FAERS Safety Report 21824389 (Version 1)
Quarter: 2023Q1

REPORT INFORMATION
  Report Type: Spontaneous
  Country: CL (occurrence: CL)
  Receive Date: 20230105
  Receipt Date: 20230105
  Transmission Date: 20230417
  Serious: Yes (Death, Hospitalization, Other)
  Sender: FDA-Public Use
  Company Number: CL-BAXTER-2022BAX031835

PATIENT
  Age: 53 Year
  Sex: Male
  Weight: 81.6 kg

DRUGS (7)
  1. SODIUM CHLORIDE [Suspect]
     Active Substance: SODIUM CHLORIDE
     Indication: Haemodialysis
     Dosage: 500 CC AT AN UNSPECIFIED FREQUENCY
     Route: 042
     Dates: start: 20220829
  2. SODIUM CHLORIDE [Suspect]
     Active Substance: SODIUM CHLORIDE
     Indication: Medication dilution
     Dosage: 1000 CC AT AN UNSPECIFIED FREQUENCY
     Route: 042
     Dates: start: 20220829
  3. SODIUM CHLORIDE [Suspect]
     Active Substance: SODIUM CHLORIDE
     Indication: Hypotension
  4. SODIUM CHLORIDE [Suspect]
     Active Substance: SODIUM CHLORIDE
     Indication: Fluid replacement
  5. HEPARIN [Suspect]
     Active Substance: HEPARIN SODIUM
     Indication: Anticoagulant therapy
     Dosage: 25 UI AT AN UNSPECIFIED FREQUENCY
     Route: 065
  6. ALCOHOL [Suspect]
     Active Substance: ALCOHOL
     Dosage: 500 CC, AT AN UNSPECIFIED FREQUENCY
     Route: 065
  7. ALCOHOL [Suspect]
     Active Substance: ALCOHOL
     Dosage: 1000 CC, AT AN UNSPECIFIED FREQUENCY
     Route: 065

REACTIONS (4)
  - Cardio-respiratory arrest [Fatal]
  - Sepsis [Unknown]
  - Burkholderia infection [Unknown]
  - Haematological infection [Unknown]

NARRATIVE: CASE EVENT DATE: 20221214
